FAERS Safety Report 4861280-1 (Version None)
Quarter: 2005Q4

REPORT INFORMATION
  Report Type: 
  Country: None (occurrence: None)
  Receive Date: 20051220
  Receipt Date: 20051209
  Transmission Date: 20060501
  Serious: Yes (Hospitalization, Other)
  Sender: FDA-Public Use
  Company Number: US-MERCK-0512USA01751

PATIENT
  Age: 83 Year
  Sex: Female
  Weight: 75 kg

DRUGS (2)
  1. VIOXX [Suspect]
     Indication: ARTHRITIS
     Route: 048
     Dates: start: 19990101, end: 20031106
  2. VIOXX [Suspect]
     Route: 048
     Dates: start: 19990101, end: 20031106

REACTIONS (6)
  - CEREBROVASCULAR ACCIDENT [None]
  - CHEST PAIN [None]
  - CORONARY ARTERY OCCLUSION [None]
  - FALL [None]
  - HEADACHE [None]
  - HYPERTENSION [None]
